FAERS Safety Report 6913806-1 (Version None)
Quarter: 2010Q3

REPORT INFORMATION
  Report Type: 
  Country: None (occurrence: None)
  Receive Date: 20100809
  Receipt Date: 20100729
  Transmission Date: 20110219
  Serious: Yes (Hospitalization)
  Sender: FDA-Public Use
  Company Number: US-ROCHE-716032

PATIENT
  Sex: Male
  Weight: 67.1 kg

DRUGS (21)
  1. BEVACIZUMAB [Suspect]
     Indication: MESOTHELIOMA
     Route: 042
     Dates: start: 20100331, end: 20100623
  2. PEMETREXED [Suspect]
     Indication: MESOTHELIOMA
     Route: 042
     Dates: start: 20100331, end: 20100623
  3. CISPLATIN [Suspect]
     Indication: MESOTHELIOMA
     Route: 042
     Dates: start: 20100331, end: 20100623
  4. DILAUDID [Concomitant]
     Dosage: DOSE: 12 MG TABLETS EVERY 4 HOURS PRN.
  5. OXYCODONE [Concomitant]
     Dosage: DRUG - OXYCODONE CR
  6. LACTULOSE [Concomitant]
     Dosage: DOSE: 667MG/ML, 30ML TWICE DAILY PRN.
  7. MIRALAX [Concomitant]
  8. SENNOSIDE [Concomitant]
     Dosage: FREQUENCY: 2 TABLETS DAILY PRN.
  9. DECADRON [Concomitant]
  10. REGLAN [Concomitant]
  11. ZOFRAN [Concomitant]
  12. EMEND [Concomitant]
  13. COMPAZINE [Concomitant]
  14. FOLIC ACID [Concomitant]
  15. VITAMIN B-12 [Concomitant]
  16. TEMOVATE [Concomitant]
  17. AMITRIPTYLINE HYDROCHLORIDE [Concomitant]
  18. COLACE [Concomitant]
     Dosage: DRUG: COLASE
  19. BENTYL [Concomitant]
  20. LYRICA [Concomitant]
  21. ZOLPIDEM [Concomitant]

REACTIONS (4)
  - ABDOMINAL PAIN [None]
  - CONSTIPATION [None]
  - MESOTHELIOMA [None]
  - PAIN [None]
